FAERS Safety Report 18553182 (Version 3)
Quarter: 2021Q3

REPORT INFORMATION
  Report Type: Other
  Country: RU (occurrence: RU)
  Receive Date: 20201127
  Receipt Date: 20210812
  Transmission Date: 20211014
  Serious: Yes (Other)
  Sender: FDA-Public Use
  Company Number: RU-ROCHE-2715625

PATIENT
  Age: 6 Month
  Sex: Male

DRUGS (4)
  1. RISDIPLAM. [Suspect]
     Active Substance: RISDIPLAM
     Indication: SPINAL MUSCULAR ATROPHY
     Dosage: 1.7 ML
     Route: 065
     Dates: start: 20200630
  2. CANEPHRON [Suspect]
     Active Substance: HERBALS
     Indication: SPINAL MUSCULAR ATROPHY
     Dosage: 5 DROPS 3 TIMES A DAY
     Route: 065
  3. AQUADETRIM [Concomitant]
  4. PULMICORT TURBUHALER [Concomitant]
     Active Substance: BUDESONIDE

REACTIONS (1)
  - Incomplete precocious puberty [Unknown]

NARRATIVE: CASE EVENT DATE: 202010
